FAERS Safety Report 7491285-6 (Version None)
Quarter: 2011Q2

REPORT INFORMATION
  Report Type: 
  Country: None (occurrence: None)
  Receive Date: 20110519
  Receipt Date: 20110511
  Transmission Date: 20111010
  Serious: Yes (Congenital Anomaly)
  Sender: FDA-Public Use
  Company Number: B0626605A

PATIENT
  Sex: Female

DRUGS (17)
  1. LYRICA [Suspect]
     Dosage: 1UNIT THREE TIMES PER DAY
     Route: 064
     Dates: end: 20090401
  2. POTASSIUM IODIDE [Concomitant]
     Route: 064
  3. ANAFRANIL [Concomitant]
     Route: 064
  4. PAROXETINE HCL [Suspect]
     Dosage: 1UNIT TWICE PER DAY
     Route: 064
     Dates: end: 20090401
  5. LYSANXIA [Suspect]
     Dosage: 1UNIT THREE TIMES PER DAY
     Route: 064
     Dates: end: 20090401
  6. DOXIUM [Suspect]
     Dosage: 1UNIT THREE TIMES PER DAY
     Route: 064
     Dates: end: 20090401
  7. APIDRA [Concomitant]
     Route: 064
  8. TPN [Concomitant]
     Route: 064
  9. OLMESARTAN MEDOXOMIL [Suspect]
     Route: 064
     Dates: end: 20090401
  10. DAFALGAN 500 [Concomitant]
     Route: 064
  11. OROCAL [Concomitant]
     Route: 064
  12. FOLIC ACID [Concomitant]
     Route: 064
  13. TERCIAN [Suspect]
     Route: 064
  14. NOVORAPID [Concomitant]
     Route: 064
  15. DICYNONE [Suspect]
     Dosage: 1UNIT PER DAY
     Route: 064
     Dates: end: 20090401
  16. DEXERYL (FRANCE) [Concomitant]
     Route: 064
  17. CITALOPRAM HYDROBROMIDE [Suspect]
     Route: 064
     Dates: start: 20090401

REACTIONS (5)
  - DRUG EXPOSURE DURING PREGNANCY [None]
  - CONGENITAL MUSCULOSKELETAL ANOMALY [None]
  - ATRIAL SEPTAL DEFECT [None]
  - POLYHYDRAMNIOS [None]
  - PREMATURE BABY [None]
